FAERS Safety Report 10004203 (Version 1)
Quarter: 2014Q1

REPORT INFORMATION
  Report Type: Report from Study
  Country: AU (occurrence: AU)
  Receive Date: 20140312
  Receipt Date: 20140312
  Transmission Date: 20141002
  Serious: Yes (Other)
  Sender: FDA-Public Use
  Company Number: AU-TEVA-467680USA

PATIENT
  Age: 60 Year
  Sex: Male

DRUGS (7)
  1. BENDAMUSTINE [Suspect]
     Indication: B-CELL LYMPHOMA STAGE IV
     Route: 065
  2. RITUXIMAB [Suspect]
     Indication: B-CELL LYMPHOMA STAGE IV
     Dosage: UNKNOWN/D
     Route: 065
  3. PREDNISONE /00044702/ [Suspect]
     Indication: B-CELL LYMPHOMA STAGE IV
     Route: 065
  4. CYCLOPHOSPHAMIDE [Suspect]
     Indication: B-CELL LYMPHOMA STAGE IV
  5. DOXORUBICIN [Suspect]
  6. VINCRISTINE [Suspect]
  7. IBRUTINUB [Concomitant]

REACTIONS (2)
  - Malignant neoplasm progression [Unknown]
  - Pancytopenia [Unknown]
